FAERS Safety Report 7153730-5 (Version None)
Quarter: 2010Q4

REPORT INFORMATION
  Report Type: 
  Country: None (occurrence: None)
  Receive Date: 20101213
  Receipt Date: 20101203
  Transmission Date: 20110411
  Serious: Yes (Hospitalization)
  Sender: FDA-Public Use
  Company Number: AU-ASTRAZENECA-2010SE57518

PATIENT
  Age: 32 Year
  Sex: Male

DRUGS (2)
  1. QUETIAPINE FUMARATE [Suspect]
     Indication: BIPOLAR DISORDER
     Route: 048
  2. LITHIUM [Concomitant]
     Indication: BIPOLAR DISORDER

REACTIONS (10)
  - C-REACTIVE PROTEIN INCREASED [None]
  - FALL [None]
  - HYPOTHERMIA [None]
  - INCONTINENCE [None]
  - INTENTIONAL OVERDOSE [None]
  - NEUROLEPTIC MALIGNANT SYNDROME [None]
  - ORTHOSTATIC HYPOTENSION [None]
  - SINUS TACHYCARDIA [None]
  - SUBGALEAL HAEMATOMA [None]
  - WHITE BLOOD CELL COUNT INCREASED [None]
